FAERS Safety Report 11022075 (Version 2)
Quarter: 2015Q2

REPORT INFORMATION
  Report Type: Report from Study
  Country: UG (occurrence: UG)
  Receive Date: 20150413
  Receipt Date: 20150504
  Transmission Date: 20150821
  Serious: Yes (Hospitalization)
  Sender: FDA-Public Use
  Company Number: UG-BRISTOL-MYERS SQUIBB COMPANY-BMS-2015-020219

PATIENT
  Age: 38 Year
  Sex: Female
  Weight: 68 kg

DRUGS (13)
  1. EFAVIRENZ [Suspect]
     Active Substance: EFAVIRENZ
     Indication: HIV INFECTION
     Dosage: 600 MG, UNK
     Route: 065
     Dates: start: 20131021
  2. AMOXICILLIN TRIHYDRATE [Concomitant]
     Active Substance: AMOXICILLIN
     Indication: BRONCHOSPASM
  3. CETRIZINE [Concomitant]
     Active Substance: CETIRIZINE HYDROCHLORIDE
     Indication: BRONCHOSPASM
  4. PARACETAMOL [Concomitant]
     Active Substance: ACETAMINOPHEN
     Indication: RESPIRATORY TRACT INFECTION
     Dosage: UNK
     Route: 065
     Dates: start: 20130927, end: 20130930
  5. AMPICLOX                           /00190301/ [Concomitant]
     Indication: RESPIRATORY TRACT INFECTION
     Dosage: UNK
     Route: 065
     Dates: start: 20130927, end: 20131002
  6. CETRIZINE [Concomitant]
     Active Substance: CETIRIZINE HYDROCHLORIDE
     Indication: RESPIRATORY TRACT INFECTION
     Dosage: UNK
     Route: 065
     Dates: start: 20130927
  7. AMOXICILLIN TRIHYDRATE [Concomitant]
     Active Substance: AMOXICILLIN
     Indication: RESPIRATORY TRACT INFECTION
  8. SALBUTAMOL [Concomitant]
     Active Substance: ALBUTEROL
     Indication: BRONCHOSPASM
     Dosage: UNK
     Route: 065
     Dates: start: 20141210
  9. CO AMOXICLAV                       /00756801/ [Concomitant]
     Indication: PRODUCT USED FOR UNKNOWN INDICATION
     Dosage: UNK
     Route: 065
     Dates: start: 20140626
  10. IBUPROFEN. [Concomitant]
     Active Substance: IBUPROFEN
     Indication: RESPIRATORY TRACT INFECTION
     Dosage: UNK
     Route: 065
     Dates: start: 20140626, end: 20140629
  11. AMOXYCILLIN                        /00249601/ [Concomitant]
     Indication: BRONCHOSPASM
     Dosage: UNK
     Route: 065
     Dates: start: 20141210, end: 20141215
  12. EFAVIRENZ, EMTRICITABINE, AND TENOFOVIR DISOPROXIL FUMARATE [Suspect]
     Active Substance: EFAVIRENZ\EMTRICITABINE\TENOFOVIR DISOPROXIL FUMARATE
     Indication: HIV INFECTION
     Dosage: 300 MG, QD
     Route: 048
     Dates: start: 20131021
  13. PREDNISOLONE. [Concomitant]
     Active Substance: PREDNISOLONE
     Indication: BRONCHOSPASM
     Dosage: UNK
     Route: 065
     Dates: start: 20141210, end: 20141212

REACTIONS (1)
  - Uterine haemorrhage [Recovered/Resolved with Sequelae]

NARRATIVE: CASE EVENT DATE: 201501
